FAERS Safety Report 8544594-3 (Version None)
Quarter: 2012Q3

REPORT INFORMATION
  Report Type: 
  Country: None (occurrence: None)
  Receive Date: 20120727
  Receipt Date: 20120719
  Transmission Date: 20120928
  Serious: Yes (Death, Hospitalization, Other)
  Sender: FDA-Public Use
  Company Number: IT-GENZYME-CERZ-1002560

PATIENT
  Age: 60 Year
  Sex: Male
  Weight: 60 kg

DRUGS (1)
  1. CEREZYME [Suspect]
     Indication: GAUCHER'S DISEASE
     Route: 042

REACTIONS (9)
  - HYPOPHAGIA [None]
  - DEHYDRATION [None]
  - HYDRONEPHROSIS [None]
  - PNEUMONIA [None]
  - ASTHENIA [None]
  - SEPSIS [None]
  - PERINEPHRIC ABSCESS [None]
  - NEPHROLITHIASIS [None]
  - PYELOCALIECTASIS [None]
